FAERS Safety Report 4491114-9 (Version None)
Quarter: 2004Q3

REPORT INFORMATION
  Report Type: 
  Country: None (occurrence: None)
  Receive Date: 20040927
  Receipt Date: 20040728
  Transmission Date: 20050211
  Serious: No
  Sender: FDA-Public Use
  Company Number: USA040773864

PATIENT
  Age: 66 Year
  Sex: Female

DRUGS (2)
  1. STRATTERA [Suspect]
     Dosage: 60 MG/1 DAY
     Dates: start: 20040627
  2. LEVOXYL [Concomitant]

REACTIONS (6)
  - ANGER [None]
  - FEELING ABNORMAL [None]
  - NERVOUSNESS [None]
  - STRESS SYMPTOMS [None]
  - TENSION [None]
  - WEIGHT DECREASED [None]
